FAERS Safety Report 5086762-1 (Version None)
Quarter: 2006Q3

REPORT INFORMATION
  Report Type: 
  Country: None (occurrence: None)
  Receive Date: 20060823
  Receipt Date: 20060706
  Transmission Date: 20061208
  Serious: No
  Sender: FDA-Public Use
  Company Number: 2006AP03156

PATIENT
  Age: 19940 Day
  Sex: Female
  Weight: 58 kg

DRUGS (5)
  1. SEROQUEL [Suspect]
     Indication: DEPRESSION
     Route: 048
     Dates: start: 20050415, end: 20060218
  2. FLUVOXAMINE MALEATE [Suspect]
     Indication: DEPRESSION
     Route: 048
     Dates: start: 20060108, end: 20060227
  3. PREMARIN [Concomitant]
     Indication: MENOPAUSAL SYMPTOMS
  4. PROVERA [Concomitant]
     Indication: MENOPAUSAL SYMPTOMS
  5. BLACKMORES FISH OIL [Concomitant]
     Route: 048

REACTIONS (1)
  - THROMBOCYTOPENIA [None]
